FAERS Safety Report 11947838 (Version 2)
Quarter: 2016Q1

REPORT INFORMATION
  Report Type: Spontaneous
  Country: CN (occurrence: CN)
  Receive Date: 20160125
  Receipt Date: 20160125
  Transmission Date: 20160526
  Serious: Yes (Life-Threatening)
  Sender: FDA-Public Use
  Company Number: CN-MYLANLABS-2016M1003369

PATIENT

DRUGS (1)
  1. CALCITONIN SALMON. [Suspect]
     Active Substance: CALCITONIN SALMON
     Indication: OSTEOPOROSIS
     Dosage: 50 IU, QD
     Route: 030
     Dates: start: 20150730, end: 20150730

REACTIONS (4)
  - Dizziness [Recovered/Resolved]
  - Chest discomfort [Recovered/Resolved]
  - Dysphoria [Recovered/Resolved]
  - Dyspnoea [Recovered/Resolved]

NARRATIVE: CASE EVENT DATE: 20150730
